FAERS Safety Report 12093819 (Version 4)
Quarter: 2016Q3

REPORT INFORMATION
  Report Type: Spontaneous
  Country: US (occurrence: US)
  Receive Date: 20160219
  Receipt Date: 20160804
  Transmission Date: 20161109
  Serious: Yes (Hospitalization, Other)
  Sender: FDA-Public Use
  Company Number: US-ASTELLAS-2016US005919

PATIENT
  Sex: Female

DRUGS (1)
  1. TARCEVA [Suspect]
     Active Substance: ERLOTINIB HYDROCHLORIDE
     Indication: LUNG NEOPLASM MALIGNANT
     Route: 048
     Dates: start: 20151222

REACTIONS (8)
  - Dry skin [Not Recovered/Not Resolved]
  - Abdominal discomfort [Unknown]
  - Dysuria [Unknown]
  - Diplopia [Unknown]
  - Diarrhoea [Unknown]
  - Gastrooesophageal reflux disease [Not Recovered/Not Resolved]
  - Muscle spasms [Unknown]
  - Alopecia [Not Recovered/Not Resolved]
